FAERS Safety Report 7267777-1 (Version None)
Quarter: 2011Q1

REPORT INFORMATION
  Report Type: 
  Country: None (occurrence: None)
  Receive Date: 20110201
  Receipt Date: 20110124
  Transmission Date: 20110831
  Serious: Yes (Hospitalization, Congenital Anomaly)
  Sender: FDA-Public Use
  Company Number: A0882066A

PATIENT
  Sex: Female

DRUGS (4)
  1. PAXIL [Suspect]
     Route: 064
  2. BETAMETHASONE [Concomitant]
     Route: 064
     Dates: start: 20050201
  3. AMPICILLIN [Concomitant]
     Route: 064
     Dates: start: 20050201
  4. MAGNESIUM SULFATE [Concomitant]
     Route: 064
     Dates: start: 20050201

REACTIONS (9)
  - CONGENITAL HEART VALVE DISORDER [None]
  - DRUG EXPOSURE DURING PREGNANCY [None]
  - DUODENAL ATRESIA [None]
  - PATENT DUCTUS ARTERIOSUS [None]
  - FALLOT'S TETRALOGY [None]
  - ATRIAL SEPTAL DEFECT [None]
  - INTESTINAL MALROTATION [None]
  - HETEROTAXIA [None]
  - CARDIAC SEPTAL DEFECT [None]
